FAERS Safety Report 15429745 (Version 1)
Quarter: 2018Q3

REPORT INFORMATION
  Report Type: Spontaneous
  Country: CA (occurrence: CA)
  Receive Date: 20180926
  Receipt Date: 20180926
  Transmission Date: 20181010
  Serious: Yes (Life-Threatening)
  Sender: FDA-Public Use
  Company Number: CA-PFIZER INC-2018385668

PATIENT
  Age: 14 Year
  Sex: Female
  Weight: 54 kg

DRUGS (1)
  1. ADVIL [Suspect]
     Active Substance: IBUPROFEN
     Indication: HEADACHE
     Dosage: 400 MG, AS NEEDED
     Route: 048

REACTIONS (2)
  - Oesophageal obstruction [Recovered/Resolved]
  - Product size issue [Recovered/Resolved]
